FAERS Safety Report 13636714 (Version 1)
Quarter: 2017Q2

REPORT INFORMATION
  Report Type: Spontaneous
  Country: BF (occurrence: BF)
  Receive Date: 20170609
  Receipt Date: 20170609
  Transmission Date: 20170830
  Serious: Yes (Other)
  Sender: FDA-Public Use
  Company Number: BF-STRIDES ARCOLAB LIMITED-2017SP009182

PATIENT

DRUGS (7)
  1. EFAVIRENZ [Suspect]
     Active Substance: EFAVIRENZ
     Indication: HIV INFECTION
     Dosage: 25 MG/KG, EVERY MORNING ON AN EMPTY STOMACH
     Route: 048
  2. LAMIVUDINE. [Suspect]
     Active Substance: LAMIVUDINE
     Indication: HIV INFECTION
     Dosage: 8 MG/KG, EVERY MORNING
     Route: 048
  3. COTRIMOXAZOLE [Concomitant]
     Active Substance: SULFAMETHOXAZOLE\TRIMETHOPRIM
     Indication: OPPORTUNISTIC INFECTION PROPHYLAXIS
     Dosage: SULFAMETHOXAZOLE (20 MG/KG) + TRIMETHOPRIM (4 MG/KG) ONCE DAILY
  4. ZIDOVUDINE. [Concomitant]
     Active Substance: ZIDOVUDINE
     Indication: HIV INFECTION
     Dosage: UNK, TWICE DAILY FOR 12-15 MONTHS
     Route: 065
  5. ABACAVIR. [Suspect]
     Active Substance: ABACAVIR
     Indication: HIV INFECTION
     Dosage: UNK, TWICE DAILY FOR 12-15 MONTHS
     Route: 065
  6. ABACAVIR. [Suspect]
     Active Substance: ABACAVIR
     Dosage: 16 MG/KG, EVERY MORNING
     Route: 048
  7. LOPINAVIR + RITONAVIR [Concomitant]
     Active Substance: LOPINAVIR\RITONAVIR
     Indication: HIV INFECTION
     Dosage: UNK, TWICE DAILY FOR 12-15 MONTHS
     Route: 065

REACTIONS (3)
  - Viral mutation identified [Unknown]
  - Drug resistance [Unknown]
  - Virologic failure [Unknown]
